FAERS Safety Report 22520288 (Version 1)
Quarter: 2023Q2

REPORT INFORMATION
  Report Type: Spontaneous
  Country: US (occurrence: None)
  Receive Date: 20230603
  Receipt Date: 20230603
  Transmission Date: 20230722
  Serious: Yes (Other)
  Sender: FDA-Public Use
  Company Number: None

PATIENT
  Age: 45 Year
  Sex: Female
  Weight: 56.25 kg

DRUGS (3)
  1. CELEXA [Suspect]
     Active Substance: CITALOPRAM HYDROBROMIDE
     Dates: start: 20210201, end: 20221101
  2. CALCIUM [Concomitant]
     Active Substance: CALCIUM
  3. MAGNESIUM [Concomitant]
     Active Substance: MAGNESIUM

REACTIONS (2)
  - Therapy interrupted [None]
  - Suicidal ideation [None]

NARRATIVE: CASE EVENT DATE: 20221101
